FAERS Safety Report 10506717 (Version 1)
Quarter: 2014Q4

REPORT INFORMATION
  Report Type: Spontaneous
  Country: US (occurrence: None)
  Receive Date: 20141008
  Receipt Date: 20141008
  Transmission Date: 20150528
  Serious: Yes (Death, Hospitalization)
  Sender: FDA-Public Use
  Company Number: None

PATIENT
  Age: 61 Year
  Sex: Female

DRUGS (15)
  1. PROPRANOLOL [Concomitant]
     Active Substance: PROPRANOLOL\PROPRANOLOL HYDROCHLORIDE
  2. FUROSEMIDE. [Concomitant]
     Active Substance: FUROSEMIDE
  3. FOLIC ACID. [Concomitant]
     Active Substance: FOLIC ACID
  4. SILDENAFIL. [Concomitant]
     Active Substance: SILDENAFIL
  5. MOMETASONE-FORMOTEROL [Concomitant]
  6. CIPROFLOXACIN. [Concomitant]
     Active Substance: CIPROFLOXACIN
  7. FAMOTIDINE. [Concomitant]
     Active Substance: FAMOTIDINE
  8. THIAMINE [Concomitant]
     Active Substance: THIAMINE
  9. LACTULOSE. [Concomitant]
     Active Substance: LACTULOSE
  10. LETAIRIS [Suspect]
     Active Substance: AMBRISENTAN
     Indication: PULMONARY HYPERTENSION
     Route: 048
     Dates: start: 20140911, end: 20140916
  11. LEVOTHYROXINE [Concomitant]
     Active Substance: LEVOTHYROXINE
  12. ENOXAPARIN [Concomitant]
     Active Substance: ENOXAPARIN
  13. POLYMXIN B-TRIMETHOPRIM [Concomitant]
  14. ALBUTEROL. [Concomitant]
     Active Substance: ALBUTEROL
  15. MULTIVITAMIN [Concomitant]
     Active Substance: VITAMINS

REACTIONS (11)
  - Bradycardia [None]
  - Upper gastrointestinal haemorrhage [None]
  - Melaena [None]
  - Asthenia [None]
  - Duodenal ulcer [None]
  - Procedural complication [None]
  - Haemorrhoids [None]
  - Dizziness [None]
  - Haematemesis [None]
  - Oxygen saturation decreased [None]
  - Respiratory failure [None]

NARRATIVE: CASE EVENT DATE: 20140927
